FAERS Safety Report 24967951 (Version 1)
Quarter: 2025Q1

REPORT INFORMATION
  Report Type: Spontaneous
  Country: US (occurrence: US)
  Receive Date: 20250214
  Receipt Date: 20250214
  Transmission Date: 20250408
  Serious: Yes (Hospitalization)
  Sender: DR REDDYS
  Company Number: US-DRL-USA-USA/2025/02/002230

PATIENT
  Age: 17 Year
  Sex: Female

DRUGS (21)
  1. LURASIDONE [Suspect]
     Active Substance: LURASIDONE
     Indication: Antipsychotic therapy
  2. OMEPRAZOLE [Suspect]
     Active Substance: OMEPRAZOLE
     Indication: Gastrointestinal disorder
  3. CETIRIZINE [Suspect]
     Active Substance: CETIRIZINE HYDROCHLORIDE
     Indication: Respiratory disorder
  4. FAMOTIDINE [Suspect]
     Active Substance: FAMOTIDINE
     Indication: Gastrointestinal disorder
  5. ONDANSETRON [Suspect]
     Active Substance: ONDANSETRON
     Indication: Gastrointestinal disorder
  6. MIRTAZAPINE [Suspect]
     Active Substance: MIRTAZAPINE
     Indication: Antipsychotic therapy
  7. PANCRELIPASE [Suspect]
     Active Substance: PANCRELIPASE
     Indication: Gastrointestinal disorder
  8. ELEXACAFTOR\IVACAFTOR\TEZACAFTOR [Suspect]
     Active Substance: ELEXACAFTOR\IVACAFTOR\TEZACAFTOR
     Indication: Product used for unknown indication
  9. DICYCLOMINE [Suspect]
     Active Substance: DICYCLOMINE HYDROCHLORIDE
     Indication: Gastrointestinal disorder
  10. SENNA/DOCUSATE SODIUM [Suspect]
     Active Substance: DOCUSATE SODIUM\SENNOSIDES
     Indication: Gastrointestinal disorder
  11. URSODIOL [Suspect]
     Active Substance: URSODIOL
     Indication: Gastrointestinal disorder
  12. DROSPIRENONE [Suspect]
     Active Substance: DROSPIRENONE
     Indication: Von Willebrand^s disease
  13. TRANEXAMIC ACID [Suspect]
     Active Substance: TRANEXAMIC ACID
     Indication: Von Willebrand^s disease
  14. FERROUS SULFATE [Suspect]
     Active Substance: FERROUS SULFATE
     Indication: Von Willebrand^s disease
  15. SERTRALINE [Suspect]
     Active Substance: SERTRALINE HYDROCHLORIDE
     Indication: Antipsychotic therapy
  16. GABAPENTIN [Suspect]
     Active Substance: GABAPENTIN
     Indication: Antipsychotic therapy
  17. CULTURELLE [Suspect]
     Active Substance: LACTOBACILLUS RHAMNOSUS
     Indication: Gastrointestinal disorder
  18. POLYETHYLENE GLYCOL [Concomitant]
     Active Substance: POLYETHYLENE GLYCOL
     Indication: Gastrointestinal disorder
  19. FLUTICASONE [Concomitant]
     Active Substance: FLUTICASONE
     Indication: Respiratory disorder
  20. SODIUM CHLORIDE [Concomitant]
     Active Substance: SODIUM CHLORIDE
     Indication: Respiratory disorder
  21. ALBUTEROL [Concomitant]
     Active Substance: ALBUTEROL
     Indication: Respiratory disorder

REACTIONS (1)
  - Food allergy [Recovering/Resolving]
